FAERS Safety Report 4281501-6 (Version None)
Quarter: 2004Q1

REPORT INFORMATION
  Report Type: 
  Country: None (occurrence: None)
  Receive Date: 20040112
  Receipt Date: 20030612
  Transmission Date: 20041129
  Serious: Yes (Hospitalization)
  Sender: FDA-Public Use
  Company Number: US-JNJFOC-20030601157

PATIENT
  Age: 55 Year
  Sex: Male

DRUGS (4)
  1. REOPRO [Suspect]
     Dosage: BOLUS PLUS TWO HOUR INFUSION
  2. ASPIRIN [Concomitant]
  3. PLAVIX [Concomitant]
  4. HEPARIN [Concomitant]

REACTIONS (1)
  - PLATELET COUNT DECREASED [None]
